FAERS Safety Report 11860328 (Version 1)
Quarter: 2015Q4

REPORT INFORMATION
  Report Type: Spontaneous
  Country: US (occurrence: US)
  Receive Date: 20151222
  Receipt Date: 20151222
  Transmission Date: 20160305
  Serious: Yes (Other)
  Sender: FDA-Public Use
  Company Number: US-PFIZER INC-2015450459

PATIENT
  Sex: Male

DRUGS (1)
  1. DILANTIN [Suspect]
     Active Substance: PHENYTOIN
     Dosage: 30 MG, UNK

REACTIONS (5)
  - Obstruction gastric [Unknown]
  - Drug ineffective [Unknown]
  - Seizure [Unknown]
  - Upper limb fracture [Unknown]
  - Constipation [Unknown]
